FAERS Safety Report 6552036-2 (Version None)
Quarter: 2010Q1

REPORT INFORMATION
  Report Type: 
  Country: None (occurrence: None)
  Receive Date: 20100126
  Receipt Date: 20100120
  Transmission Date: 20100710
  Serious: Yes (Death, Other)
  Sender: FDA-Public Use
  Company Number: JP-ROCHE-671787

PATIENT
  Age: 58 Year
  Sex: Male

DRUGS (9)
  1. GANCICLOVIR [Suspect]
     Indication: CYTOMEGALOVIRUS INFECTION
     Route: 065
  2. CELLCEPT [Suspect]
     Indication: PROPHYLAXIS AGAINST GRAFT VERSUS HOST DISEASE
     Route: 048
  3. CYCLOSPORINE [Concomitant]
  4. PREDNISOLONE [Concomitant]
     Dosage: GIVEN FOR ACUTE GVHD INVOLVING THE SKIN AND GUT ON DAY 23.
  5. PREDNISOLONE [Concomitant]
     Dosage: THE DOSE OF PREDNISOLONE WAS REPORTED AS TAPERING AFTER ACUTE GVHD OF SKIN AND GUT RESOLVED.
  6. PREDNISOLONE [Concomitant]
     Dosage: GIVEN FOR CHRONIC HEPATIC GVHD ON DAY 76.
  7. PREDNISOLONE [Concomitant]
     Dosage: THE DOSAGE WAS REPORTED AS TAPERING AFTER HEPATIC GVHD RESOLVED.
  8. PREDNISOLONE [Concomitant]
     Dosage: GIVEN FOR PULMONARY AND HEPATIC GVHD ON DAY 244.
  9. FOSCARNET [Concomitant]
     Indication: CYTOMEGALOVIRUS INFECTION

REACTIONS (3)
  - CEREBRAL HAEMORRHAGE [None]
  - CYTOMEGALOVIRUS INFECTION [None]
  - LYMPHOPROLIFERATIVE DISORDER [None]
